FAERS Safety Report 5178051-1 (Version None)
Quarter: 2006Q4

REPORT INFORMATION
  Report Type: 
  Country: None (occurrence: None)
  Receive Date: 20061218
  Receipt Date: 20060728
  Transmission Date: 20070319
  Serious: No
  Sender: FDA-Public Use
  Company Number: US-AMGEN-KDL188369

PATIENT
  Sex: Male

DRUGS (3)
  1. ENBREL [Suspect]
     Indication: RHEUMATOID ARTHRITIS
     Route: 058
     Dates: start: 20051214
  2. METHOTREXATE [Concomitant]
     Dates: start: 20060718
  3. PLAQUENIL [Concomitant]
     Dates: start: 20060718

REACTIONS (4)
  - EYE IRRITATION [None]
  - EYELID OEDEMA [None]
  - LOCALISED OEDEMA [None]
  - NECK MASS [None]
